FAERS Safety Report 12012416 (Version 1)
Quarter: 2016Q1

REPORT INFORMATION
  Report Type: Report from Study
  Country: US (occurrence: US)
  Receive Date: 20160205
  Receipt Date: 20160205
  Transmission Date: 20160526
  Serious: Yes (Hospitalization)
  Sender: FDA-Public Use
  Company Number: US-ABBVIE-16K-163-1550107-00

PATIENT
  Age: 58 Year
  Sex: Female
  Weight: 78.09 kg

DRUGS (3)
  1. HYDROXYCHLOROQUINE [Concomitant]
     Active Substance: HYDROXYCHLOROQUINE
     Indication: RHEUMATOID ARTHRITIS
  2. HUMIRA [Suspect]
     Active Substance: ADALIMUMAB
     Indication: RHEUMATOID ARTHRITIS
     Route: 058
     Dates: start: 2015, end: 201512
  3. PREDNISONE. [Suspect]
     Active Substance: PREDNISONE
     Indication: RHEUMATOID ARTHRITIS
     Route: 065

REACTIONS (5)
  - Procedural pain [Unknown]
  - Diarrhoea [Recovered/Resolved]
  - Cholelithiasis [Not Recovered/Not Resolved]
  - Cholecystitis infective [Recovering/Resolving]
  - Mobility decreased [Recovered/Resolved]

NARRATIVE: CASE EVENT DATE: 201512
